FAERS Safety Report 6007422-6 (Version None)
Quarter: 2008Q4

REPORT INFORMATION
  Report Type: 
  Country: None (occurrence: None)
  Receive Date: 20081217
  Receipt Date: 20080415
  Transmission Date: 20090506
  Serious: No
  Sender: FDA-Public Use
  Company Number: US-ASTRAZENECA-2008UW07672

PATIENT
  Age: 66 Year
  Sex: Female
  Weight: 55.8 kg

DRUGS (5)
  1. CRESTOR [Suspect]
     Indication: BLOOD CHOLESTEROL INCREASED
     Route: 048
     Dates: start: 20071101, end: 20080321
  2. EVISTA [Concomitant]
  3. ALLEGRA [Concomitant]
  4. SYNTHETIC THYROID [Concomitant]
  5. ANTACID TAB [Concomitant]

REACTIONS (4)
  - BLOOD PRESSURE INCREASED [None]
  - HYPERSENSITIVITY [None]
  - LIP SWELLING [None]
  - URTICARIA [None]
